FAERS Safety Report 7821748-2 (Version None)
Quarter: 2011Q4

REPORT INFORMATION
  Report Type: 
  Country: None (occurrence: None)
  Receive Date: 20111018
  Receipt Date: 20101013
  Transmission Date: 20120403
  Serious: No
  Sender: FDA-Public Use
  Company Number: US-ASTRAZENECA-2010SE48487

PATIENT
  Age: 84 Year
  Sex: Female

DRUGS (3)
  1. SYMBICORT [Suspect]
     Indication: CHRONIC OBSTRUCTIVE PULMONARY DISEASE
     Dosage: 80/4.5 TWO PUFFS TWICE A DAY
     Route: 055
  2. ALBUTEROL [Concomitant]
     Dosage: Q4-6H
  3. IPRATROPIUM BROMIDE [Concomitant]
     Dosage: Q4-6H

REACTIONS (1)
  - DYSPNOEA [None]
